FAERS Safety Report 12967661 (Version 1)
Quarter: 2016Q4

REPORT INFORMATION
  Report Type: Spontaneous
  Country: US (occurrence: US)
  Receive Date: 20161123
  Receipt Date: 20161123
  Transmission Date: 20170207
  Serious: No
  Sender: FDA-Public Use
  Company Number: US-TEVA-643150USA

PATIENT
  Sex: Female

DRUGS (2)
  1. OXYBUTYNIN [Suspect]
     Active Substance: OXYBUTYNIN
     Route: 065
  2. ENABLEX [Concomitant]
     Active Substance: DARIFENACIN HYDROBROMIDE

REACTIONS (1)
  - Rash [Unknown]
